FAERS Safety Report 9111422 (Version 1)
Quarter: 2013Q1

REPORT INFORMATION
  Report Type: Spontaneous
  Country: US (occurrence: US)
  Receive Date: 20130219
  Receipt Date: 20130219
  Transmission Date: 20140127
  Serious: No
  Sender: FDA-Public Use
  Company Number: US-BRISTOL-MYERS SQUIBB COMPANY-16567638

PATIENT
  Age: 54 Year
  Sex: Female
  Weight: 113.38 kg

DRUGS (5)
  1. ORENCIA [Suspect]
     Indication: RHEUMATOID ARTHRITIS
     Dosage: INF:6. LAST INF:7APR12. NEXT INF DUE: 8MAY12
     Route: 042
     Dates: start: 201112
  2. METHOTREXATE [Concomitant]
  3. VENTOLIN [Concomitant]
  4. NAPROSYN [Concomitant]
  5. LANSOPRAZOLE [Concomitant]

REACTIONS (3)
  - Pain in extremity [Not Recovered/Not Resolved]
  - Swelling [Unknown]
  - Drug ineffective [Unknown]
